FAERS Safety Report 8847555 (Version 1)
Quarter: 2012Q4

REPORT INFORMATION
  Report Type: 
  Country: US (occurrence: US)
  Receive Date: 20121018
  Receipt Date: 20121018
  Transmission Date: 20130627
  Serious: Yes (Other)
  Sender: FDA-Public Use
  Company Number: US-MYLANLABS-2011S1021495

PATIENT

DRUGS (1)
  1. RISPERIDONE [Suspect]
     Route: 048

REACTIONS (1)
  - Convulsion [Unknown]
